FAERS Safety Report 18192054 (Version 1)
Quarter: 2020Q3

REPORT INFORMATION
  Report Type: Spontaneous
  Country: US (occurrence: US)
  Receive Date: 20200825
  Receipt Date: 20200825
  Transmission Date: 20201103
  Serious: Yes (Other)
  Sender: FDA-Public Use
  Company Number: US-SA-2020SA222562

PATIENT

DRUGS (3)
  1. CHARCOAL [Suspect]
     Active Substance: ACTIVATED CHARCOAL
  2. ICY HOT XL BACK AND LARGE AREAS [Suspect]
     Active Substance: MENTHOL
  3. ICY HOT WITH LIDOCAINE [Suspect]
     Active Substance: LIDOCAINE\MENTHOL
     Indication: ARTHRITIS

REACTIONS (1)
  - Atrial fibrillation [Unknown]

NARRATIVE: CASE EVENT DATE: 20200819
